FAERS Safety Report 7433885-5 (Version None)
Quarter: 2011Q2

REPORT INFORMATION
  Report Type: 
  Country: None (occurrence: None)
  Receive Date: 20110420
  Receipt Date: 20110420
  Transmission Date: 20111010
  Serious: Yes (Other)
  Sender: FDA-Public Use
  Company Number: None

PATIENT
  Age: 71 Year
  Sex: Female

DRUGS (1)
  1. HEPARIN [Suspect]
     Indication: DEEP VEIN THROMBOSIS
     Dosage: 18 UNITS/KG/HR CONTINUOUS IV DRIP
     Route: 041
     Dates: start: 20110303, end: 20110316

REACTIONS (2)
  - PLATELET COUNT DECREASED [None]
  - HEPARIN-INDUCED THROMBOCYTOPENIA [None]
